FAERS Safety Report 4383111-9 (Version None)
Quarter: 2004Q2

REPORT INFORMATION
  Report Type: 
  Country: None (occurrence: None)
  Receive Date: 20040618
  Receipt Date: 20040531
  Transmission Date: 20050107
  Serious: Yes (Hospitalization)
  Sender: FDA-Public Use
  Company Number: JP_040603244

PATIENT
  Age: 63 Year
  Sex: Male
  Weight: 60 kg

DRUGS (5)
  1. GEMZAR [Suspect]
     Indication: PANCREATIC CARCINOMA
     Dosage: 1626 MG OTHER
     Dates: start: 20040113, end: 20040210
  2. FAMOTIDINE [Concomitant]
  3. GASTROZEPIN [Concomitant]
  4. DOGMATYL(SULPIRIDE) [Concomitant]
  5. LOXONIN(LOXOPROFEN SODIUM) [Concomitant]

REACTIONS (7)
  - ANOREXIA [None]
  - DUODENAL PERFORATION [None]
  - HAEMORRHAGE [None]
  - OESOPHAGEAL CANDIDIASIS [None]
  - PERITONITIS [None]
  - RETROPERITONEAL ABSCESS [None]
  - VOMITING [None]
